FAERS Safety Report 8391093-8 (Version None)
Quarter: 2012Q2

REPORT INFORMATION
  Report Type: 
  Country: None (occurrence: None)
  Receive Date: 20120529
  Receipt Date: 20120525
  Transmission Date: 20120825
  Serious: Yes (Life-Threatening, Hospitalization)
  Sender: FDA-Public Use
  Company Number: PHHY2012IT032789

PATIENT
  Sex: Male
  Weight: 92 kg

DRUGS (9)
  1. PANTOPRAZOLE SODIUM [Concomitant]
     Dosage: 20 MG, UNK
     Route: 048
  2. LASIX [Concomitant]
     Dosage: 25 MG, UNK
     Route: 048
  3. CERTICAN [Suspect]
     Dosage: 1.5 MG, UNK
     Route: 048
     Dates: start: 20070101
  4. ATORVASTATIN CALCIUM [Concomitant]
     Dosage: 40 MG, UNK
     Route: 048
  5. PLAVIX [Concomitant]
  6. BISOPROLOL FUMARATE [Concomitant]
     Dosage: 2.5 MG, UNK
     Route: 048
  7. ASPIRIN [Concomitant]
  8. LENTO-KALIUM [Concomitant]
  9. ALLOPURINOL [Concomitant]
     Dosage: 300 MG, UNK
     Route: 048

REACTIONS (2)
  - PULMONARY OEDEMA [None]
  - ACUTE MYOCARDIAL INFARCTION [None]
